FAERS Safety Report 7973031-2 (Version None)
Quarter: 2011Q4

REPORT INFORMATION
  Report Type: 
  Country: None (occurrence: None)
  Receive Date: 20111213
  Receipt Date: 20111207
  Transmission Date: 20120403
  Serious: Yes (Hospitalization)
  Sender: FDA-Public Use
  Company Number: FR-BRISTOL-MYERS SQUIBB COMPANY-16256299

PATIENT
  Age: 54 Year
  Sex: Male

DRUGS (4)
  1. NORVIR [Suspect]
     Indication: HIV INFECTION
     Dosage: 1DF:1 CAP NORVIR 100 MG
     Route: 048
     Dates: start: 20091228
  2. TRUVADA [Suspect]
     Indication: HIV INFECTION
     Dosage: 1DF:1TABLET TRUVADA  200 MG/245 MG
     Route: 048
     Dates: start: 20060105
  3. CHLORHEXIDINE GLUCONATE [Concomitant]
     Route: 061
     Dates: start: 20100308
  4. REYATAZ [Suspect]
     Indication: HIV INFECTION
     Dosage: 1DF:1 CAP
     Route: 048
     Dates: start: 20091228

REACTIONS (1)
  - RENAL COLIC [None]
